FAERS Safety Report 18504510 (Version 1)
Quarter: 2020Q4

REPORT INFORMATION
  Report Type: Report from Study
  Country: GB (occurrence: GB)
  Receive Date: 20201114
  Receipt Date: 20201114
  Transmission Date: 20210114
  Serious: Yes (Other)
  Sender: FDA-Public Use
  Company Number: NVSC2020GB301949

PATIENT
  Sex: Female

DRUGS (1)
  1. HYRIMOZ [Suspect]
     Active Substance: ADALIMUMAB-ADAZ
     Indication: RHEUMATOID ARTHRITIS
     Dosage: (DOSE 40/0.8 MG/ML AND FREQUENCY WAS EOW)
     Route: 065
     Dates: start: 20200214

REACTIONS (8)
  - Joint swelling [Unknown]
  - Neutrophil count decreased [Unknown]
  - Pain [Unknown]
  - Arthralgia [Unknown]
  - Blindness [Unknown]
  - Depressed mood [Unknown]
  - Neurosarcoidosis [Unknown]
  - Sensitive skin [Unknown]
